FAERS Safety Report 7519338-4 (Version None)
Quarter: 2011Q2

REPORT INFORMATION
  Report Type: 
  Country: None (occurrence: None)
  Receive Date: 20110602
  Receipt Date: 20110523
  Transmission Date: 20111010
  Serious: Yes (Hospitalization)
  Sender: FDA-Public Use
  Company Number: JP-ASTRAZENECA-2011SE31461

PATIENT
  Age: 26 Year
  Sex: Female

DRUGS (7)
  1. PL GRAN. [Concomitant]
  2. DORAL [Concomitant]
     Route: 048
  3. PYRETHIA [Concomitant]
     Route: 048
  4. ZOLPIDEM [Suspect]
     Route: 048
  5. PURSENIDE [Concomitant]
     Route: 048
  6. SEROQUEL [Suspect]
     Indication: SCHIZOPHRENIA
     Route: 048
  7. BENZALIN [Concomitant]
     Route: 048

REACTIONS (2)
  - MULTIPLE DRUG OVERDOSE [None]
  - PNEUMONIA [None]
